FAERS Safety Report 11804427 (Version 1)
Quarter: 2015Q4

REPORT INFORMATION
  Report Type: Not Available
  Country: US (occurrence: US)
  Receive Date: 20151204
  Receipt Date: 20151204
  Transmission Date: 20160305
  Serious: Yes (Other)
  Sender: FDA-Public Use
  Company Number: US-ANIPHARMA-2015-US-000632

PATIENT
  Age: 39 Year
  Sex: Female

DRUGS (5)
  1. ZONISAMIDE (NON-SPECIFIC) [Suspect]
     Active Substance: ZONISAMIDE
     Dosage: 25 MG DAILY
  2. ASTEPRO [Concomitant]
     Active Substance: AZELASTINE HYDROCHLORIDE
     Route: 045
  3. IMITREX [Concomitant]
     Active Substance: SUMATRIPTAN\SUMATRIPTAN SUCCINATE
     Route: 048
  4. QVAR [Concomitant]
     Active Substance: BECLOMETHASONE DIPROPIONATE
  5. BOTULINUM TOXIN [Concomitant]
     Active Substance: BOTULINUM TOXIN TYPE A
     Route: 030

REACTIONS (4)
  - Off label use [None]
  - Angle closure glaucoma [Unknown]
  - Myopia [Unknown]
  - Choroidal effusion [Unknown]
